FAERS Safety Report 5741542-6 (Version None)
Quarter: 2008Q2

REPORT INFORMATION
  Report Type: 
  Country: None (occurrence: None)
  Receive Date: 20080519
  Receipt Date: 20080403
  Transmission Date: 20081010
  Serious: Yes (Other)
  Sender: FDA-Public Use
  Company Number: US-BAYER-200810351BCC

PATIENT
  Age: 57 Year
  Sex: Male
  Weight: 109 kg

DRUGS (4)
  1. ASPIRIN [Suspect]
     Indication: ISCHAEMIC HEART DISEASE PROPHYLAXIS
     Dosage: TOTAL DAILY DOSE: 81 MG  UNIT DOSE: 81 MG
     Route: 048
     Dates: start: 20060901
  2. BLOOD PRESSURE MEDICATION (NOS) [Concomitant]
  3. LIPITOR [Concomitant]
  4. NIACIN [Concomitant]

REACTIONS (3)
  - CHEST PAIN [None]
  - DISCOMFORT [None]
  - MYOCARDIAL INFARCTION [None]
